FAERS Safety Report 12862094 (Version 1)
Quarter: 2016Q4

REPORT INFORMATION
  Report Type: Spontaneous
  Country: US (occurrence: US)
  Receive Date: 20161018
  Receipt Date: 20161018
  Transmission Date: 20170207
  Serious: Yes (Other)
  Sender: FDA-Public Use
  Company Number: None

PATIENT
  Age: 78 Year
  Sex: Female

DRUGS (2)
  1. IBANDRONATE [Suspect]
     Active Substance: IBANDRONATE SODIUM
     Indication: OSTEOPOROSIS
     Dosage: ?          OTHER FREQUENCY:ONCE MONTHLY;?
     Route: 048
     Dates: start: 20161008, end: 20161017
  2. CYTOMEL [Concomitant]
     Active Substance: LIOTHYRONINE SODIUM

REACTIONS (9)
  - Hypokinesia [None]
  - Nausea [None]
  - Asthma [None]
  - Pain in extremity [None]
  - Paraesthesia [None]
  - Back pain [None]
  - Influenza [None]
  - Musculoskeletal pain [None]
  - Musculoskeletal chest pain [None]

NARRATIVE: CASE EVENT DATE: 20161008
